FAERS Safety Report 5376620-7 (Version None)
Quarter: 2007Q2

REPORT INFORMATION
  Report Type: 
  Country: None (occurrence: None)
  Receive Date: 20070628
  Receipt Date: 20070619
  Transmission Date: 20071010
  Serious: Yes (Death, Hospitalization)
  Sender: FDA-Public Use
  Company Number: B0476392A

PATIENT
  Age: 78 Year
  Sex: Female

DRUGS (3)
  1. ALLOPURINOL [Suspect]
  2. AMOXICILLIN TRIHYDRATE [Suspect]
  3. FUROSEMIDE [Suspect]

REACTIONS (3)
  - RESPIRATORY FAILURE [None]
  - STEVENS-JOHNSON SYNDROME [None]
  - TOXIC EPIDERMAL NECROLYSIS [None]
